FAERS Safety Report 7874154-9 (Version None)
Quarter: 2011Q4

REPORT INFORMATION
  Report Type: 
  Country: None (occurrence: None)
  Receive Date: 20111030
  Receipt Date: 20110516
  Transmission Date: 20120403
  Serious: No
  Sender: FDA-Public Use
  Company Number: US-AMGEN-USASP2011025167

PATIENT
  Age: 59 Year
  Sex: Male

DRUGS (1)
  1. ENBREL [Suspect]
     Indication: PSORIATIC ARTHROPATHY
     Dosage: 50 MG, QWK
     Dates: start: 20110416

REACTIONS (7)
  - EAR PAIN [None]
  - FEELING HOT [None]
  - PARANASAL SINUS HYPERSECRETION [None]
  - SENSITIVITY OF TEETH [None]
  - TOOTHACHE [None]
  - PYREXIA [None]
  - EPISTAXIS [None]
